FAERS Safety Report 23888761 (Version 1)
Quarter: 2024Q2

REPORT INFORMATION
  Report Type: Spontaneous
  Country: EG (occurrence: EG)
  Receive Date: 20240523
  Receipt Date: 20240523
  Transmission Date: 20240716
  Serious: Yes (Hospitalization, Other)
  Sender: FDA-Public Use
  Company Number: EG-HIKMA PHARMACEUTICALS-EG-H14001-24-04288

PATIENT
  Age: 35 Year
  Sex: Female
  Weight: 72 kg

DRUGS (6)
  1. ETOPOSIDE [Suspect]
     Active Substance: ETOPOSIDE
     Indication: Glioma
     Dosage: 170 MILLIGRAM, 3W, DAYS 1-3
     Route: 041
     Dates: start: 20240330
  2. DEXAMETHASONE [Suspect]
     Active Substance: DEXAMETHASONE
     Indication: Glioma
     Dosage: 100 MILLIGRAM, QD
     Route: 048
     Dates: start: 20240330
  3. CISPLATIN [Suspect]
     Active Substance: CISPLATIN
     Indication: Glioma
     Dosage: 100 MILLIGRAM, 3W, ON DAY ONE
     Route: 041
     Dates: start: 20240330
  4. ANDOVIMPAMIDE [Concomitant]
     Indication: Epilepsy
     Dosage: UNKNOWN
     Route: 065
  5. CALCIUM GLUCONATE [Concomitant]
     Active Substance: CALCIUM GLUCONATE
     Indication: Hypothyroidism
     Dosage: UNKNOWN
     Route: 065
  6. EUTHYROX [Concomitant]
     Active Substance: LEVOTHYROXINE SODIUM
     Indication: Product used for unknown indication
     Dosage: 250 MICROGRAM, QD
     Route: 065

REACTIONS (2)
  - Seizure [Recovered/Resolved]
  - Hypokalaemia [Recovered/Resolved]

NARRATIVE: CASE EVENT DATE: 20240419
